FAERS Safety Report 21878932 (Version 1)
Quarter: 2023Q1

REPORT INFORMATION
  Report Type: Spontaneous
  Country: US (occurrence: None)
  Receive Date: 20230118
  Receipt Date: 20230118
  Transmission Date: 20230418
  Serious: Yes (Hospitalization)
  Sender: FDA-Public Use
  Company Number: None

PATIENT
  Age: 70 Year
  Sex: Female
  Weight: 71.5 kg

DRUGS (1)
  1. PONATINIB [Suspect]
     Active Substance: PONATINIB
     Dates: end: 20221228

REACTIONS (12)
  - Musculoskeletal chest pain [None]
  - Myalgia [None]
  - Asthenia [None]
  - Dyspnoea [None]
  - Chest discomfort [None]
  - Infection [None]
  - Pulmonary mass [None]
  - Pneumonitis [None]
  - Acute graft versus host disease [None]
  - Blood potassium increased [None]
  - Pleural effusion [None]
  - Brachiocephalic vein thrombosis [None]

NARRATIVE: CASE EVENT DATE: 20221228
